FAERS Safety Report 9353206 (Version 3)
Quarter: 2013Q3

REPORT INFORMATION
  Report Type: Spontaneous
  Country: US (occurrence: None)
  Receive Date: 20130612
  Receipt Date: 20130916
  Transmission Date: 20140515
  Serious: Yes (Hospitalization, Other)
  Sender: FDA-Public Use
  Company Number: JPI-P-032678

PATIENT
  Age: 60 Year
  Sex: Female

DRUGS (1)
  1. XYREM (500 MILLIGRAM/MILLILITERS, SOLUTION) (SODIUM OXYBATE) [Suspect]
     Indication: HYPERSOMNIA
     Dosage: 6 GM (3 GM, 2 IN 1 D), ORAL
     Route: 048
     Dates: start: 20111206

REACTIONS (6)
  - Dehydration [None]
  - Sunburn [None]
  - Blister [None]
  - Spinal column stenosis [None]
  - Fall [None]
  - Dysstasia [None]
